FAERS Safety Report 7968410-3 (Version None)
Quarter: 2011Q4

REPORT INFORMATION
  Report Type: 
  Country: None (occurrence: None)
  Receive Date: 20111209
  Receipt Date: 20111201
  Transmission Date: 20120403
  Serious: Yes (Death)
  Sender: FDA-Public Use
  Company Number: IT-CEPHALON-2011006082

PATIENT
  Sex: Male

DRUGS (5)
  1. MABTHERA [Concomitant]
     Dates: start: 20110803, end: 20110803
  2. ACETAMINOPHEN [Concomitant]
  3. BENDAMUSTINE HCL [Suspect]
     Route: 042
  4. AMIKACINE SULPHATE [Concomitant]
  5. CEFTAZIDIME PENTAHYDRATE [Concomitant]

REACTIONS (3)
  - LEUKOPENIA [None]
  - DIARRHOEA [None]
  - PYREXIA [None]
